FAERS Safety Report 14375167 (Version 2)
Quarter: 2018Q2

REPORT INFORMATION
  Report Type: Report from Study
  Country: US (occurrence: US)
  Receive Date: 20180111
  Receipt Date: 20180504
  Transmission Date: 20180711
  Serious: No
  Sender: FDA-Public Use
  Company Number: US-ROCHE-2052021

PATIENT
  Age: 39 Year
  Sex: Female

DRUGS (2)
  1. OCREVUS [Suspect]
     Active Substance: OCRELIZUMAB
     Indication: MULTIPLE SCLEROSIS
     Route: 065
     Dates: start: 20171117
  2. BOTOX [Suspect]
     Active Substance: ONABOTULINUMTOXINA
     Indication: MIGRAINE
     Route: 065
     Dates: start: 2016

REACTIONS (14)
  - Malaise [Not Recovered/Not Resolved]
  - Lower respiratory tract infection [Unknown]
  - Ear infection [Unknown]
  - Sneezing [Not Recovered/Not Resolved]
  - Nasopharyngitis [Not Recovered/Not Resolved]
  - Fatigue [Not Recovered/Not Resolved]
  - Influenza like illness [Unknown]
  - Migraine [Not Recovered/Not Resolved]
  - Nerve compression [Recovered/Resolved]
  - Immunodeficiency [Unknown]
  - Infection susceptibility increased [Unknown]
  - Rhinorrhoea [Not Recovered/Not Resolved]
  - Rhinorrhoea [Recovered/Resolved]
  - Gait disturbance [Not Recovered/Not Resolved]

NARRATIVE: CASE EVENT DATE: 20180105
